FAERS Safety Report 18629558 (Version 1)
Quarter: 2020Q4

REPORT INFORMATION
  Report Type: Report from Study
  Country: IN (occurrence: IN)
  Receive Date: 20201217
  Receipt Date: 20201217
  Transmission Date: 20210114
  Serious: Yes (Death)
  Sender: FDA-Public Use
  Company Number: NVSC2020IN335216

PATIENT
  Age: 57 Year
  Sex: Female

DRUGS (1)
  1. REVOLADE [Suspect]
     Active Substance: ELTROMBOPAG
     Indication: APLASTIC ANAEMIA
     Dosage: 50 MG, BID
     Route: 048
     Dates: start: 202011, end: 202011

REACTIONS (2)
  - Inappropriate schedule of product administration [Unknown]
  - Pneumonia [Fatal]

NARRATIVE: CASE EVENT DATE: 202011
